FAERS Safety Report 8224342-7 (Version None)
Quarter: 2012Q1

REPORT INFORMATION
  Report Type: 
  Country: None (occurrence: None)
  Receive Date: 20120321
  Receipt Date: 20120203
  Transmission Date: 20120608
  Serious: No
  Sender: FDA-Public Use
  Company Number: US-MYLANLABS-2012S1002828

PATIENT
  Age: 54 Year
  Sex: Male

DRUGS (2)
  1. OMEPRAZOLE [Concomitant]
     Dosage: OTC
  2. DIVALPROEX SODIUM [Suspect]
     Indication: MOOD SWINGS
     Dates: start: 20120202, end: 20120203

REACTIONS (4)
  - CHILLS [None]
  - HEADACHE [None]
  - INSOMNIA [None]
  - DIARRHOEA [None]
